FAERS Safety Report 4330124-9 (Version None)
Quarter: 2004Q1

REPORT INFORMATION
  Report Type: 
  Country: None (occurrence: None)
  Receive Date: 20040329
  Receipt Date: 20040129
  Transmission Date: 20041129
  Serious: No
  Sender: FDA-Public Use
  Company Number: 04P-163-0248902-00

PATIENT
  Age: 47 Year
  Sex: Female
  Weight: 74.8435 kg

DRUGS (7)
  1. HUMIRA [Suspect]
     Indication: RHEUMATOID ARTHRITIS
     Dosage: 40 MG, 1 IN 2 WK, SUBCUTANEOUS
     Route: 058
     Dates: start: 20030901
  2. LEVOTHYROXINE SODIUM [Concomitant]
  3. FOLIC ACID [Concomitant]
  4. QUETIAPINE [Concomitant]
  5. PROPACET 100 [Concomitant]
  6. PANTOPRAZOLE [Concomitant]
  7. ROFECOXIB [Concomitant]

REACTIONS (2)
  - INJECTION SITE BURNING [None]
  - RHEUMATOID ARTHRITIS [None]
